FAERS Safety Report 15211074 (Version 1)
Quarter: 2018Q3

REPORT INFORMATION
  Report Type: Spontaneous
  Country: US (occurrence: US)
  Receive Date: 20180728
  Receipt Date: 20180728
  Transmission Date: 20181010
  Serious: No
  Sender: FDA-Public Use
  Company Number: US-JNJFOC-20180720086

PATIENT
  Sex: Male

DRUGS (2)
  1. STELARA [Suspect]
     Active Substance: USTEKINUMAB
     Indication: CROHN^S DISEASE
     Route: 058
     Dates: start: 201710, end: 20180517
  2. PROSCAR [Concomitant]
     Active Substance: FINASTERIDE
     Route: 065

REACTIONS (2)
  - Dysphonia [Unknown]
  - Ataxia [Unknown]

NARRATIVE: CASE EVENT DATE: 20180615
